FAERS Safety Report 14890984 (Version 1)
Quarter: 2018Q2

REPORT INFORMATION
  Report Type: Spontaneous
  Country: DE (occurrence: DE)
  Receive Date: 20180514
  Receipt Date: 20180514
  Transmission Date: 20180711
  Serious: Yes (Death, Hospitalization, Other)
  Sender: FDA-Public Use
  Company Number: DE-GLENMARK PHARMACEUTICALS-2018GMK035231

PATIENT
  Age: 21 Year
  Sex: Male

DRUGS (2)
  1. TOPIRAMATE. [Suspect]
     Active Substance: TOPIRAMATE
     Indication: SEIZURE
     Dosage: WAS TAKING FROM PAST 7 YEARS ()
     Route: 065
  2. POTASSIUM BROMIDE [Concomitant]
     Active Substance: POTASSIUM BROMIDE
     Indication: SEIZURE
     Dosage: WAS TAKING FROM PAST 7 YEARS ()
     Route: 065

REACTIONS (5)
  - Cardiac arrest [Fatal]
  - Hyperthermia [Fatal]
  - Brain oedema [Fatal]
  - Brain herniation [Fatal]
  - Seizure [Fatal]
